FAERS Safety Report 14055146 (Version 1)
Quarter: 2017Q4

REPORT INFORMATION
  Report Type: Spontaneous
  Country: US (occurrence: None)
  Receive Date: 20171006
  Receipt Date: 20171006
  Transmission Date: 20180321
  Serious: No
  Sender: FDA-Public Use
  Company Number: None

PATIENT

DRUGS (2)
  1. ADRENALIN [Suspect]
     Active Substance: EPINEPHRINE
     Route: 030
  2. ADRENALIN [Suspect]
     Active Substance: EPINEPHRINE

REACTIONS (3)
  - Product label confusion [None]
  - Intercepted drug dispensing error [None]
  - Product packaging confusion [None]
